FAERS Safety Report 8418953-3 (Version None)
Quarter: 2012Q2

REPORT INFORMATION
  Report Type: 
  Country: None (occurrence: None)
  Receive Date: 20120607
  Receipt Date: 20120531
  Transmission Date: 20120825
  Serious: Yes (Hospitalization, Other)
  Sender: FDA-Public Use
  Company Number: PHFR2010GB06117

PATIENT
  Sex: Male

DRUGS (7)
  1. RISPERIDONE [Concomitant]
     Indication: SCHIZOAFFECTIVE DISORDER
     Dosage: 4 MG/DAY
     Route: 048
  2. VALPROATE SODIUM [Concomitant]
     Indication: SCHIZOAFFECTIVE DISORDER
     Dosage: 1 G/DAY
     Route: 048
  3. SALMETEROL [Concomitant]
     Indication: CHRONIC OBSTRUCTIVE PULMONARY DISEASE
  4. CLOZARIL [Suspect]
     Indication: SCHIZOPHRENIA
     Route: 048
     Dates: start: 19970101
  5. CLOZARIL [Suspect]
     Dosage: 500 MG PER DAY
     Route: 048
     Dates: start: 20050101
  6. TIOTROPIUM [Concomitant]
  7. CLOZARIL [Suspect]
     Route: 048
     Dates: start: 20071130

REACTIONS (14)
  - ORCHITIS [None]
  - MALAISE [None]
  - EAR INFECTION [None]
  - CELLULITIS [None]
  - LIVER FUNCTION TEST ABNORMAL [None]
  - HEPATITIS C [None]
  - WHITE BLOOD CELL COUNT INCREASED [None]
  - LOWER RESPIRATORY TRACT INFECTION [None]
  - CHEST DISCOMFORT [None]
  - DIFFERENTIAL WHITE BLOOD CELL COUNT ABNORMAL [None]
  - PLATELET COUNT DECREASED [None]
  - TUBERCULOSIS [None]
  - LEUKOCYTOSIS [None]
  - EOSINOPHIL COUNT INCREASED [None]
